FAERS Safety Report 10786598 (Version 1)
Quarter: 2015Q1

REPORT INFORMATION
  Report Type: Report from Study
  Country: US (occurrence: US)
  Receive Date: 20150211
  Receipt Date: 20150211
  Transmission Date: 20150721
  Serious: Yes (Hospitalization, Other)
  Sender: FDA-Public Use
  Company Number: US-ASTRAZENECA-2015SE11872

PATIENT
  Age: 63 Year
  Sex: Female
  Weight: 87.1 kg

DRUGS (20)
  1. ULTRAM [Concomitant]
     Active Substance: TRAMADOL HYDROCHLORIDE
     Indication: PAIN
     Route: 048
     Dates: start: 2008
  2. RENAL CAP [Concomitant]
     Indication: VITAMIN SUPPLEMENTATION
     Dosage: DAILY
     Route: 048
     Dates: start: 201310
  3. CALCIUM [Concomitant]
     Active Substance: CALCIUM
     Indication: DIALYSIS
     Dosage: DAILY
     Route: 048
     Dates: start: 2014
  4. NEXIUM [Suspect]
     Active Substance: ESOMEPRAZOLE MAGNESIUM
     Indication: GASTROOESOPHAGEAL REFLUX DISEASE
     Route: 048
  5. PRESCRIPTION VITAMIN D3 [Concomitant]
     Route: 048
     Dates: start: 2014
  6. PEPTIC [Concomitant]
  7. NEXIUM [Suspect]
     Active Substance: ESOMEPRAZOLE MAGNESIUM
     Indication: GASTROOESOPHAGEAL REFLUX DISEASE
     Route: 048
     Dates: start: 201501, end: 201501
  8. PRILOSEC [Suspect]
     Active Substance: OMEPRAZOLE MAGNESIUM
     Indication: GASTROOESOPHAGEAL REFLUX DISEASE
     Route: 048
  9. Z [Concomitant]
     Indication: GASTRIC DISORDER
  10. ASPIRIN. [Concomitant]
     Active Substance: ASPIRIN
     Indication: ANTICOAGULANT THERAPY
     Route: 048
     Dates: start: 2007
  11. LIPITOR [Concomitant]
     Active Substance: ATORVASTATIN CALCIUM
     Indication: BLOOD CHOLESTEROL ABNORMAL
     Route: 048
     Dates: start: 2007
  12. PLAVIX [Concomitant]
     Active Substance: CLOPIDOGREL BISULFATE
     Indication: ANTICOAGULANT THERAPY
     Route: 048
     Dates: start: 2007
  13. GENERIC FOR DULCOLAX [Concomitant]
     Indication: FAECES HARD
     Route: 048
     Dates: start: 201401
  14. NORCO [Concomitant]
     Active Substance: ACETAMINOPHEN\HYDROCODONE BITARTRATE
     Indication: PAIN
     Dosage: EVERY SIX HOURS, 375/25 MG
     Route: 048
     Dates: start: 2008
  15. VITAMIN B12 [Concomitant]
     Active Substance: CYANOCOBALAMIN
     Indication: VITAMIN B12 ABNORMAL
     Dosage: EVERY MORNING
     Route: 060
     Dates: start: 2013
  16. CARDILA [Concomitant]
     Indication: HYPERTENSION
     Route: 048
     Dates: start: 201310
  17. TRUE BIONICS [Concomitant]
     Indication: GASTROINTESTINAL DISORDER
     Dosage: AT NIGHT
     Route: 048
     Dates: start: 201408
  18. NEXIUM [Suspect]
     Active Substance: ESOMEPRAZOLE MAGNESIUM
     Indication: GASTROOESOPHAGEAL REFLUX DISEASE
     Route: 048
     Dates: start: 201501, end: 201501
  19. ASPIRIN. [Concomitant]
     Active Substance: ASPIRIN
     Indication: CARDIAC VALVE DISEASE
     Route: 048
     Dates: start: 2007
  20. NEURONTIN [Concomitant]
     Active Substance: GABAPENTIN
     Indication: NEURALGIA
     Route: 048
     Dates: start: 2005

REACTIONS (17)
  - Blood glucose increased [Unknown]
  - Blood calcium decreased [Unknown]
  - Renal failure [Unknown]
  - Cardiac failure [Unknown]
  - Malaise [Not Recovered/Not Resolved]
  - Device intolerance [Unknown]
  - Blood potassium abnormal [Unknown]
  - Regurgitation [Unknown]
  - Vomiting [Unknown]
  - Adverse event [Unknown]
  - Diarrhoea [Recovered/Resolved]
  - Drug ineffective [Unknown]
  - Pneumonia [Unknown]
  - Gastrooesophageal reflux disease [Unknown]
  - Malaise [Unknown]
  - Influenza [Unknown]
  - Intentional product misuse [Unknown]

NARRATIVE: CASE EVENT DATE: 2012
